FAERS Safety Report 5771939-X (Version None)
Quarter: 2008Q2

REPORT INFORMATION
  Report Type: 
  Country: None (occurrence: None)
  Receive Date: 20080613
  Receipt Date: 20080606
  Transmission Date: 20081010
  Serious: Yes (Other)
  Sender: FDA-Public Use
  Company Number: GB-ASTRAZENECA-2008GB01052

PATIENT
  Age: 42 Year
  Sex: Male
  Weight: 92 kg

DRUGS (1)
  1. OMEPRAZOLE [Suspect]
     Indication: GASTROOESOPHAGEAL REFLUX DISEASE
     Dosage: 10 MG
     Route: 048
     Dates: start: 20060725, end: 20080521

REACTIONS (1)
  - AGEUSIA [None]
